FAERS Safety Report 6277751-X (Version None)
Quarter: 2009Q3

REPORT INFORMATION
  Report Type: 
  Country: None (occurrence: None)
  Receive Date: 20090722
  Receipt Date: 20090713
  Transmission Date: 20100115
  Serious: Yes (Other)
  Sender: FDA-Public Use
  Company Number: B0583901A

PATIENT
  Age: 19 Year
  Sex: Female

DRUGS (2)
  1. RELENZA [Suspect]
     Route: 055
     Dates: start: 20090708
  2. AUGMENTIN [Concomitant]
     Route: 065

REACTIONS (3)
  - DRUG EXPOSURE DURING PREGNANCY [None]
  - LYMPHOPENIA [None]
  - NEUTROPENIA [None]
